FAERS Safety Report 19901451 (Version 1)
Quarter: 2021Q3

REPORT INFORMATION
  Report Type: Spontaneous
  Country: US (occurrence: US)
  Receive Date: 20210929
  Receipt Date: 20210929
  Transmission Date: 20211014
  Serious: No
  Sender: FDA-Public Use
  Company Number: US-ASTRAZENECA-2021A723746

PATIENT
  Sex: Male
  Weight: 77.1 kg

DRUGS (2)
  1. BREZTRI AEROSPHERE [Suspect]
     Active Substance: BUDESONIDE\FORMOTEROL\GLYCOPYRRONIUM
     Indication: CHRONIC OBSTRUCTIVE PULMONARY DISEASE
     Dosage: 2 PUFFS TWICE A DAY SINCE LATEST AUGUST OF 2021 OR THE BEGINNING OF SEPTEMBER OF 2021
     Route: 055
     Dates: start: 20210908
  2. BEVESPI AEROSPHERE [Suspect]
     Active Substance: FORMOTEROL FUMARATE\GLYCOPYRROLATE
     Indication: CHRONIC OBSTRUCTIVE PULMONARY DISEASE
     Dosage: 2 PUFFS TWICE A DAY IN ???JAN?2021 OR ???FEB?2021, DISCONTINUED TWO WEEKS LATER.
     Route: 055
     Dates: start: 202101

REACTIONS (2)
  - Overdose [Unknown]
  - Dyspnoea [Unknown]
